FAERS Safety Report 6126327-3 (Version None)
Quarter: 2009Q1

REPORT INFORMATION
  Report Type: 
  Country: None (occurrence: None)
  Receive Date: 20090320
  Receipt Date: 20090310
  Transmission Date: 20090719
  Serious: Yes (Hospitalization)
  Sender: FDA-Public Use
  Company Number: TR-ELI_LILLY_AND_COMPANY-TR200903002798

PATIENT
  Sex: Female

DRUGS (1)
  1. HUMULIN 70/30 [Suspect]
     Indication: TYPE 2 DIABETES MELLITUS
     Dosage: 18 U/MORNING, 16 U/EVENING
     Route: 058
     Dates: start: 20081201

REACTIONS (3)
  - BLOOD GLUCOSE DECREASED [None]
  - PALPITATIONS [None]
  - THYROID DISORDER [None]
